FAERS Safety Report 10079346 (Version 1)
Quarter: 2014Q2

REPORT INFORMATION
  Report Type: Spontaneous
  Country: US (occurrence: US)
  Receive Date: 20140415
  Receipt Date: 20140415
  Transmission Date: 20141212
  Serious: Yes (Other)
  Sender: FDA-Public Use
  Company Number: US-ACTAVIS-2014-07092

PATIENT
  Age: 53 Year
  Sex: Female

DRUGS (1)
  1. ANDRODERM (WATSON LABORATORIES) [Suspect]
     Indication: LIBIDO DECREASED
     Dosage: 300 UG/DAY
     Route: 062

REACTIONS (1)
  - Osteonecrosis [Unknown]
